FAERS Safety Report 17063346 (Version 1)
Quarter: 2019Q4

REPORT INFORMATION
  Report Type: Spontaneous
  Country: US (occurrence: US)
  Receive Date: 20191122
  Receipt Date: 20191122
  Transmission Date: 20200122
  Serious: No
  Sender: FDA-Public Use
  Company Number: US-NOVOPROD-630520

PATIENT
  Sex: Male

DRUGS (1)
  1. NOVOLOG [Suspect]
     Active Substance: INSULIN ASPART
     Indication: TYPE 1 DIABETES MELLITUS
     Dosage: 8-20 UNITS PER MEAL
     Route: 058
     Dates: start: 2016

REACTIONS (4)
  - Blood glucose decreased [Not Recovered/Not Resolved]
  - Feeling drunk [Not Recovered/Not Resolved]
  - Blood glucose increased [Unknown]
  - Skin odour abnormal [Not Recovered/Not Resolved]

NARRATIVE: CASE EVENT DATE: 2016
